FAERS Safety Report 24927837 (Version 1)
Quarter: 2025Q1

REPORT INFORMATION
  Report Type: Spontaneous
  Country: US (occurrence: US)
  Receive Date: 20250205
  Receipt Date: 20250205
  Transmission Date: 20250409
  Serious: No
  Sender: ROCHE
  Company Number: US-ROCHE-10000193454

PATIENT
  Age: 38 Year
  Sex: Female

DRUGS (1)
  1. XOLAIR PFS [Suspect]
     Active Substance: OMALIZUMAB
     Indication: Urticaria chronic
     Dosage: IN THE THIGH OR ABDOMEN, ONGOING
     Route: 058
     Dates: start: 2024

REACTIONS (4)
  - Accidental exposure to product [Unknown]
  - Product complaint [Unknown]
  - Device malfunction [Unknown]
  - Urticaria [Not Recovered/Not Resolved]

NARRATIVE: CASE EVENT DATE: 20250117
